FAERS Safety Report 8435140-3 (Version None)
Quarter: 2012Q2

REPORT INFORMATION
  Report Type: 
  Country: None (occurrence: None)
  Receive Date: 20120614
  Receipt Date: 20120612
  Transmission Date: 20120825
  Serious: Yes (Other)
  Sender: FDA-Public Use
  Company Number: PHEH2006US07278

PATIENT
  Sex: Female
  Weight: 63.492 kg

DRUGS (14)
  1. AREDIA [Suspect]
     Indication: BREAST CANCER
     Dosage: 90 MG, QMO
     Route: 042
     Dates: start: 19981001, end: 20020315
  2. TAMOXIFEN CITRATE [Concomitant]
     Dosage: 10 MG, BID
     Route: 048
  3. LEUCOVORIN CALCIUM [Concomitant]
  4. ALLEGRA [Concomitant]
  5. ZOMETA [Suspect]
     Indication: BREAST CANCER
     Dosage: 4 MG, QMO
     Route: 042
     Dates: start: 20020417, end: 20050325
  6. QUININE SULFATE [Concomitant]
  7. ZOCOR [Concomitant]
  8. FEMARA [Concomitant]
     Indication: BREAST CANCER
     Dosage: 2.5 MG, QD
     Route: 048
  9. CHLORHEXIDINE GLUCONATE [Concomitant]
  10. VITAMIN TAB [Concomitant]
  11. CALCIUM [Concomitant]
  12. ZOMETA [Suspect]
     Dates: start: 20050325, end: 20050425
  13. CITALOPRAM [Concomitant]
  14. ANAESTHETICS, LOCAL [Concomitant]

REACTIONS (63)
  - ANHEDONIA [None]
  - JAW DISORDER [None]
  - MASTICATION DISORDER [None]
  - TOOTH RESORPTION [None]
  - VESTIBULAR DISORDER [None]
  - CHRONIC OBSTRUCTIVE PULMONARY DISEASE [None]
  - PNEUMONIA [None]
  - HYPONATRAEMIA [None]
  - PYELONEPHRITIS [None]
  - BLOOD CREATININE INCREASED [None]
  - DEPRESSION [None]
  - PERIODONTITIS [None]
  - TOOTH IMPACTED [None]
  - CEREBRAL ARTERIOSCLEROSIS [None]
  - HYPERCHOLESTEROLAEMIA [None]
  - GASTROOESOPHAGEAL REFLUX DISEASE [None]
  - OSTEONECROSIS OF JAW [None]
  - SPINAL OSTEOARTHRITIS [None]
  - ECZEMA [None]
  - TOOTHACHE [None]
  - DECREASED INTEREST [None]
  - BACK PAIN [None]
  - OSTEITIS [None]
  - ARTHRALGIA [None]
  - BALANCE DISORDER [None]
  - ALOPECIA [None]
  - DIVERTICULUM INTESTINAL [None]
  - AMNESIA [None]
  - NEUROPATHY PERIPHERAL [None]
  - ADRENAL ADENOMA [None]
  - ANXIETY [None]
  - LUMBAR SPINAL STENOSIS [None]
  - THYROID ADENOMA [None]
  - DRY EYE [None]
  - SCIATICA [None]
  - FATIGUE [None]
  - HEADACHE [None]
  - HYPERTENSION [None]
  - DIZZINESS [None]
  - IMPAIRED HEALING [None]
  - PAIN [None]
  - ESCHERICHIA INFECTION [None]
  - SPONDYLOLISTHESIS [None]
  - MOBILITY DECREASED [None]
  - GASTRIC VARICES [None]
  - COLON ADENOMA [None]
  - BRONCHITIS [None]
  - MALAISE [None]
  - BONE DISORDER [None]
  - UPPER LIMB FRACTURE [None]
  - HYPERLIPIDAEMIA [None]
  - SKIN EXFOLIATION [None]
  - GINGIVAL DISORDER [None]
  - SYNCOPE [None]
  - CIRCULATORY COLLAPSE [None]
  - INJURY [None]
  - GENERAL PHYSICAL HEALTH DETERIORATION [None]
  - INFECTION [None]
  - TOOTH DISORDER [None]
  - TOOTH LOSS [None]
  - CEREBRAL ISCHAEMIA [None]
  - VERTIGO [None]
  - HYPOTENSION [None]
